FAERS Safety Report 23162089 (Version 3)
Quarter: 2025Q1

REPORT INFORMATION
  Report Type: Report from Study
  Country: CA (occurrence: CA)
  Receive Date: 20231109
  Receipt Date: 20250218
  Transmission Date: 20250408
  Serious: Yes (Other)
  Sender: JOHNSON AND JOHNSON
  Company Number: CA-JNJFOC-20231116376

PATIENT
  Age: 39 Year
  Sex: Male
  Weight: 62 kg

DRUGS (2)
  1. REMICADE [Suspect]
     Active Substance: INFLIXIMAB
     Indication: Crohn^s disease
     Route: 041
     Dates: start: 20150611, end: 20241218
  2. REMICADE [Suspect]
     Active Substance: INFLIXIMAB
     Dosage: APPOINTMENT OF 08-NOV-2023 POSTPONED TILL 23-NOV-2023
     Route: 041

REACTIONS (1)
  - Syphilis [Recovering/Resolving]

NARRATIVE: CASE EVENT DATE: 20241001
